FAERS Safety Report 7879143-6 (Version None)
Quarter: 2011Q4

REPORT INFORMATION
  Report Type: 
  Country: None (occurrence: None)
  Receive Date: 20111101
  Receipt Date: 20111020
  Transmission Date: 20120403
  Serious: Yes (Hospitalization)
  Sender: FDA-Public Use
  Company Number: US-BAYER-2011-022447

PATIENT
  Sex: Female

DRUGS (2)
  1. YAZ [Suspect]
     Indication: CONTRACEPTION
     Dosage: UNK
     Dates: start: 20071101, end: 20081101
  2. NSAID'S [Concomitant]
     Route: 048

REACTIONS (4)
  - GALLBLADDER DISORDER [None]
  - INJURY [None]
  - PROCEDURAL PAIN [None]
  - ABDOMINAL PAIN [None]
